FAERS Safety Report 23107185 (Version 3)
Quarter: 2023Q4

REPORT INFORMATION
  Report Type: Spontaneous
  Country: BR (occurrence: BR)
  Receive Date: 20231026
  Receipt Date: 20231107
  Transmission Date: 20240109
  Serious: Yes (Other)
  Sender: FDA-Public Use
  Company Number: BR-BoehringerIngelheim-2023-BI-268555

PATIENT
  Sex: Female
  Weight: 58 kg

DRUGS (2)
  1. OLODATEROL HYDROCHLORIDE\TIOTROPIUM BROMIDE MONOHYDRATE [Suspect]
     Active Substance: OLODATEROL HYDROCHLORIDE\TIOTROPIUM BROMIDE MONOHYDRATE
     Indication: Chronic obstructive pulmonary disease
     Dosage: TWO PUFFS, TWICE A DAY (EVERY 12 HOUS), AEROSOL
     Route: 048
     Dates: start: 20230915, end: 20231010
  2. OLODATEROL HYDROCHLORIDE\TIOTROPIUM BROMIDE MONOHYDRATE [Suspect]
     Active Substance: OLODATEROL HYDROCHLORIDE\TIOTROPIUM BROMIDE MONOHYDRATE
     Dosage: TWO PUFFS ONCE A DAY

REACTIONS (8)
  - Asthmatic crisis [Recovered/Resolved]
  - Incorrect dose administered [Recovered/Resolved]
  - Speech disorder [Recovered/Resolved]
  - Wheezing [Recovered/Resolved]
  - Wrong technique in device usage process [Unknown]
  - Accidental exposure to product [Unknown]
  - Oropharyngeal pain [Recovered/Resolved]
  - Conjunctivitis [Unknown]
